FAERS Safety Report 7488329-4 (Version None)
Quarter: 2011Q2

REPORT INFORMATION
  Report Type: 
  Country: None (occurrence: None)
  Receive Date: 20110518
  Receipt Date: 20110505
  Transmission Date: 20111010
  Serious: No
  Sender: FDA-Public Use
  Company Number: CA-ELI_LILLY_AND_COMPANY-CA201105001355

PATIENT
  Sex: Male

DRUGS (6)
  1. TEMAZ [Concomitant]
  2. ZOPICLONE [Concomitant]
  3. SEROQUEL [Concomitant]
  4. ZYPREXA [Suspect]
     Indication: SCHIZOAFFECTIVE DISORDER
     Dosage: 5 MG, UNK
     Dates: start: 19991213
  5. ZYPREXA [Suspect]
     Dosage: 2.5 MG, UNK
  6. ZYPREXA [Suspect]
     Dosage: 10 MG, UNK

REACTIONS (5)
  - TYPE 2 DIABETES MELLITUS [None]
  - MICROALBUMINURIA [None]
  - RECTAL HAEMORRHAGE [None]
  - DYSLIPIDAEMIA [None]
  - HYPERGLYCAEMIA [None]
